FAERS Safety Report 14413665 (Version 3)
Quarter: 2018Q2

REPORT INFORMATION
  Report Type: Spontaneous
  Country: US (occurrence: US)
  Receive Date: 20180119
  Receipt Date: 20180412
  Transmission Date: 20180711
  Serious: Yes (Hospitalization)
  Sender: FDA-Public Use
  Company Number: US-ACTELION-A-US2018-166096

PATIENT
  Age: 76 Year
  Sex: Female

DRUGS (12)
  1. PRILOSEC [Concomitant]
     Active Substance: OMEPRAZOLE MAGNESIUM
  2. ALLOPURINOL. [Concomitant]
     Active Substance: ALLOPURINOL
  3. TORSEMIDE. [Concomitant]
     Active Substance: TORSEMIDE
  4. TOPROL XL [Concomitant]
     Active Substance: METOPROLOL SUCCINATE
  5. OPSUMIT [Suspect]
     Active Substance: MACITENTAN
     Indication: PULMONARY HYPERTENSION
     Dosage: UNK
     Route: 048
     Dates: start: 20170227
  6. PANTOPRAZOLE [Concomitant]
     Active Substance: PANTOPRAZOLE
  7. COUMADIN [Concomitant]
     Active Substance: WARFARIN SODIUM
  8. OXYGEN. [Concomitant]
     Active Substance: OXYGEN
  9. SILDENAFIL. [Concomitant]
     Active Substance: SILDENAFIL
  10. PRAVASTATIN. [Concomitant]
     Active Substance: PRAVASTATIN
  11. LEXAPRO [Concomitant]
     Active Substance: ESCITALOPRAM OXALATE
  12. POTASSIUM CHLORIDE. [Concomitant]
     Active Substance: POTASSIUM CHLORIDE

REACTIONS (11)
  - Pneumonia [Recovering/Resolving]
  - Sepsis [Recovering/Resolving]
  - Acute respiratory failure [Recovered/Resolved]
  - Red blood cell count decreased [Recovering/Resolving]
  - Hypercapnia [Recovered/Resolved]
  - Packed red blood cell transfusion [Recovering/Resolving]
  - White blood cell count increased [Recovering/Resolving]
  - Haemoglobin decreased [Recovering/Resolving]
  - Haematocrit decreased [Recovering/Resolving]
  - Hypoxia [Recovered/Resolved]
  - Anaemia [Recovering/Resolving]
